FAERS Safety Report 5297829-7 (Version None)
Quarter: 2007Q2

REPORT INFORMATION
  Report Type: 
  Country: None (occurrence: None)
  Receive Date: 20070413
  Receipt Date: 20070413
  Transmission Date: 20071010
  Serious: Yes (Other)
  Sender: FDA-Public Use
  Company Number: None

PATIENT
  Age: 40 Year
  Sex: Male
  Weight: 116.1208 kg

DRUGS (2)
  1. ZOCOR [Suspect]
     Indication: BLOOD CHOLESTEROL
     Dosage: ONE TABLET ONCE DAILY ORALLY
     Route: 048
     Dates: start: 20061201, end: 20070227
  2. LISINOPRIL AND HYDROCHLOROTHIAZIDE [Concomitant]

REACTIONS (5)
  - AMNESIA [None]
  - ANOREXIA [None]
  - INSOMNIA [None]
  - PSYCHOTIC DISORDER [None]
  - WEIGHT DECREASED [None]
